FAERS Safety Report 8264643-X (Version None)
Quarter: 2012Q2

REPORT INFORMATION
  Report Type: 
  Country: None (occurrence: None)
  Receive Date: 20120406
  Receipt Date: 20120328
  Transmission Date: 20120825
  Serious: Yes (Hospitalization)
  Sender: FDA-Public Use
  Company Number: JP-ELI_LILLY_AND_COMPANY-JP201203004452

PATIENT
  Sex: Male
  Weight: 72 kg

DRUGS (13)
  1. ALIMTA [Suspect]
     Indication: LUNG ADENOCARCINOMA STAGE III
     Dosage: 900 MG, UNK
     Route: 042
     Dates: start: 20120124, end: 20120214
  2. LOXONIN [Concomitant]
     Dosage: 60 MG, TID
     Route: 048
     Dates: start: 20120124, end: 20120215
  3. OXYCONTIN [Concomitant]
     Dosage: 5 MG, TID
     Route: 048
     Dates: start: 20110124, end: 20120215
  4. SENNARIDE [Concomitant]
     Dosage: 12 MG, UNK
     Route: 048
     Dates: start: 20110124, end: 20120215
  5. MUCOSOLVAN [Concomitant]
     Dosage: 15 MG, TID
     Route: 048
     Dates: start: 20110124, end: 20120215
  6. PROCHLORPERAZINE [Concomitant]
     Dosage: 5 MG, TID
     Route: 048
     Dates: start: 20110124, end: 20120215
  7. OXINORM [Concomitant]
     Dosage: 2.5 MG, UNK
     Route: 048
     Dates: start: 20110124, end: 20120215
  8. FRESMIN S [Concomitant]
  9. MAGMITT [Concomitant]
     Dosage: 330 MG, TID
     Route: 048
     Dates: start: 20110124, end: 20120215
  10. HOKUNALIN [Concomitant]
     Dosage: 2 MG, QD
     Route: 062
     Dates: start: 20110124, end: 20120215
  11. AVASTIN [Concomitant]
     Indication: LUNG ADENOCARCINOMA STAGE III
     Dosage: 1240 MG, UNK
     Route: 042
     Dates: start: 20120124, end: 20120214
  12. PANVITAN [Concomitant]
     Dosage: 1 G, UNK
     Route: 048
     Dates: start: 20120119
  13. MUCOSTA [Concomitant]
     Dosage: 100 MG, TID
     Route: 048
     Dates: start: 20120124, end: 20120215

REACTIONS (1)
  - INTERSTITIAL LUNG DISEASE [None]
